FAERS Safety Report 5532538-8 (Version None)
Quarter: 2007Q4

REPORT INFORMATION
  Report Type: 
  Country: None (occurrence: None)
  Receive Date: 20071203
  Receipt Date: 20071127
  Transmission Date: 20080405
  Serious: No
  Sender: FDA-Public Use
  Company Number: US-BOEHRINGER INGELHEIM PHARMACEUTICALS, INC.-2007-BP-24163BP

PATIENT
  Sex: Male

DRUGS (11)
  1. SPIRIVA [Suspect]
     Indication: EMPHYSEMA
     Route: 055
     Dates: start: 20070101
  2. ADVAIR DISKUS 100/50 [Concomitant]
     Indication: EMPHYSEMA
  3. FLOMAX [Concomitant]
  4. FERROUS [Concomitant]
  5. TRAZODONE HCL [Concomitant]
  6. PRILOSEC [Concomitant]
  7. COENZYME Q10 [Concomitant]
  8. CARDEZAM [Concomitant]
  9. ENALAPRIL [Concomitant]
  10. ZOLOFT [Concomitant]
  11. PICOLINATE [Concomitant]

REACTIONS (1)
  - HAEMANGIOMA OF SKIN [None]
